FAERS Safety Report 5389952-3 (Version None)
Quarter: 2007Q3

REPORT INFORMATION
  Report Type: 
  Country: None (occurrence: None)
  Receive Date: 20070716
  Receipt Date: 20070716
  Transmission Date: 20080115
  Serious: Yes (Life-Threatening)
  Sender: FDA-Public Use
  Company Number: None

PATIENT
  Age: 84 Year
  Sex: Male

DRUGS (1)
  1. RIFAMPIN [Suspect]
     Indication: STAPHYLOCOCCAL ABSCESS
     Dosage: 600MG EVERY DAY PO
     Route: 048
     Dates: start: 20070627, end: 20070706

REACTIONS (3)
  - HEPATIC ENZYME INCREASED [None]
  - HYPOTENSION [None]
  - RENAL FAILURE ACUTE [None]
